FAERS Safety Report 25099728 (Version 1)
Quarter: 2025Q1

REPORT INFORMATION
  Report Type: Spontaneous
  Country: GB (occurrence: GB)
  Receive Date: 20250320
  Receipt Date: 20250320
  Transmission Date: 20250409
  Serious: Yes (Other)
  Sender: TEVA
  Company Number: None

PATIENT
  Age: 19 Year
  Sex: Female

DRUGS (1)
  1. DOXYCYCLINE [Suspect]
     Active Substance: DOXYCYCLINE
     Indication: Cough
     Route: 065
     Dates: start: 20250310, end: 20250312

REACTIONS (1)
  - Vulval oedema [Recovering/Resolving]

NARRATIVE: CASE EVENT DATE: 20250311
